FAERS Safety Report 16264248 (Version 2)
Quarter: 2019Q2

REPORT INFORMATION
  Report Type: Spontaneous
  Country: CH (occurrence: CH)
  Receive Date: 20190502
  Receipt Date: 20190522
  Transmission Date: 20190711
  Serious: Yes (Other)
  Sender: FDA-Public Use
  Company Number: CH-ROCHE-2308572

PATIENT
  Sex: Female
  Weight: 70 kg

DRUGS (5)
  1. MABTHERA [Suspect]
     Active Substance: RITUXIMAB
     Indication: B-CELL LYMPHOMA
     Route: 042
     Dates: start: 20170210, end: 20180203
  2. BACTRIM [Suspect]
     Active Substance: SULFAMETHOXAZOLE\TRIMETHOPRIM
     Indication: B-CELL LYMPHOMA
     Route: 065
  3. VIDEX [Concomitant]
     Active Substance: DIDANOSINE
     Route: 065
     Dates: start: 20170303
  4. BENDAMUSTINE [Concomitant]
     Active Substance: BENDAMUSTINE
     Indication: B-CELL LYMPHOMA
     Route: 042
     Dates: start: 20170209, end: 20170808
  5. VALTREX [Concomitant]
     Active Substance: VALACYCLOVIR HYDROCHLORIDE
     Route: 065
     Dates: start: 20170209, end: 20180529

REACTIONS (5)
  - Disease progression [Not Recovered/Not Resolved]
  - Bone marrow toxicity [Unknown]
  - Hypersensitivity [Unknown]
  - Neutropenia [Recovered/Resolved]
  - Off label use [Unknown]
